FAERS Safety Report 25303915 (Version 2)
Quarter: 2025Q3

REPORT INFORMATION
  Report Type: Spontaneous
  Country: EU (occurrence: EU)
  Receive Date: 20250513
  Receipt Date: 20250820
  Transmission Date: 20251020
  Serious: Yes (Other)
  Sender: ROCHE
  Company Number: None

PATIENT
  Age: 85 Year
  Sex: Female
  Weight: 65.9 kg

DRUGS (1)
  1. ERIVEDGE [Suspect]
     Active Substance: VISMODEGIB
     Indication: Basal cell carcinoma
     Route: 048
     Dates: start: 20240525, end: 20250314

REACTIONS (2)
  - Hepatitis cholestatic [Recovered/Resolved]
  - Hepatitis chronic active [Recovered/Resolved]

NARRATIVE: CASE EVENT DATE: 20241122
